FAERS Safety Report 25299601 (Version 2)
Quarter: 2025Q2

REPORT INFORMATION
  Report Type: Spontaneous
  Country: US (occurrence: US)
  Receive Date: 20250512
  Receipt Date: 20250604
  Transmission Date: 20250716
  Serious: No
  Sender: MACLEODS
  Company Number: US-MACLEODS PHARMA-MAC2025052890

PATIENT

DRUGS (1)
  1. TRIAMCINOLONE [Suspect]
     Active Substance: TRIAMCINOLONE
     Indication: Skin warm
     Route: 061
     Dates: start: 20250425

REACTIONS (11)
  - Paraesthesia oral [Recovered/Resolved]
  - Gingival pain [Recovered/Resolved]
  - Gingival pain [Recovered/Resolved]
  - Mouth haemorrhage [Recovered/Resolved]
  - Gingival bleeding [Recovered/Resolved]
  - Gingival discomfort [Recovered/Resolved]
  - Gingival pain [Recovered/Resolved]
  - Stomatitis [Recovered/Resolved]
  - Blister [Recovered/Resolved]
  - Stomatitis [Recovered/Resolved]
  - Accidental exposure to product by elderly person [Unknown]

NARRATIVE: CASE EVENT DATE: 20250425
